FAERS Safety Report 14252555 (Version 4)
Quarter: 2018Q2

REPORT INFORMATION
  Report Type: Spontaneous
  Country: GT (occurrence: GT)
  Receive Date: 20171205
  Receipt Date: 20180510
  Transmission Date: 20180711
  Serious: Yes (Other)
  Sender: FDA-Public Use
  Company Number: GT-ROCHE-2030378

PATIENT

DRUGS (1)
  1. AVASTIN [Suspect]
     Active Substance: BEVACIZUMAB
     Indication: PRODUCT USED FOR UNKNOWN INDICATION
     Dosage: 100MG/4ML
     Route: 031

REACTIONS (6)
  - Liquid product physical issue [Unknown]
  - Endophthalmitis [Unknown]
  - Product counterfeit [Unknown]
  - Off label use [Unknown]
  - Uveitis [Unknown]
  - Eye irritation [Unknown]
